FAERS Safety Report 5652000-1 (Version None)
Quarter: 2008Q1

REPORT INFORMATION
  Report Type: 
  Country: None (occurrence: None)
  Receive Date: 20080305
  Receipt Date: 20080222
  Transmission Date: 20080703
  Serious: Yes (Disabling, Other)
  Sender: FDA-Public Use
  Company Number: GB-PFIZER INC-2008017818

PATIENT
  Age: 35 Year
  Sex: Female

DRUGS (1)
  1. CHANTIX [Suspect]
     Indication: SMOKING CESSATION THERAPY
     Route: 048
     Dates: start: 20080118, end: 20080129

REACTIONS (6)
  - CHEST PAIN [None]
  - DYSARTHRIA [None]
  - FATIGUE [None]
  - IRRITABILITY [None]
  - PANIC ATTACK [None]
  - VISION BLURRED [None]
